FAERS Safety Report 7909050-1 (Version None)
Quarter: 2011Q4

REPORT INFORMATION
  Report Type: 
  Country: None (occurrence: None)
  Receive Date: 20111108
  Receipt Date: 20111024
  Transmission Date: 20120403
  Serious: Yes (Hospitalization, Disabling)
  Sender: FDA-Public Use
  Company Number: 2011MA009142

PATIENT
  Sex: Male

DRUGS (18)
  1. DIGOXIN [Suspect]
     Indication: GASTROOESOPHAGEAL REFLUX DISEASE
     Dosage: 0.25 MG;UNK;PO
     Route: 048
     Dates: start: 20080501, end: 20090201
  2. ZANTAC [Concomitant]
  3. BUSPAR [Concomitant]
  4. VIAGRA [Concomitant]
  5. GLYBURIDE [Concomitant]
  6. TAGAMET [Concomitant]
  7. ATIVAN [Concomitant]
  8. PRISTIQ [Concomitant]
  9. BENICAR [Concomitant]
  10. CIALIS [Concomitant]
  11. PAXIL [Concomitant]
  12. AMBIEN [Concomitant]
  13. SOMA [Concomitant]
  14. GI COCKTAIL [Concomitant]
  15. LISINOPRIL [Concomitant]
  16. REGLAN [Concomitant]
  17. LORTAB [Concomitant]
  18. GLIPIZIDE [Concomitant]

REACTIONS (30)
  - PAIN [None]
  - EMOTIONAL DISTRESS [None]
  - CHEST PAIN [None]
  - NAUSEA [None]
  - HYPERTENSION [None]
  - ABDOMINAL PAIN [None]
  - ANXIETY [None]
  - LIFE EXPECTANCY SHORTENED [None]
  - DIZZINESS [None]
  - TRANSIENT ISCHAEMIC ATTACK [None]
  - DRUG INEFFECTIVE [None]
  - ADNEXA UTERI MASS [None]
  - FATIGUE [None]
  - DYSPEPSIA [None]
  - PULMONARY EMBOLISM [None]
  - ANHEDONIA [None]
  - ERECTILE DYSFUNCTION [None]
  - GASTROOESOPHAGEAL REFLUX DISEASE [None]
  - CARDIOACTIVE DRUG LEVEL BELOW THERAPEUTIC [None]
  - OBESITY [None]
  - BLOOD GLUCOSE INCREASED [None]
  - ECONOMIC PROBLEM [None]
  - DEPRESSION [None]
  - LIBIDO DECREASED [None]
  - ANGER [None]
  - UNEVALUABLE EVENT [None]
  - LUNG NEOPLASM [None]
  - MUSCULOSKELETAL PAIN [None]
  - FALL [None]
  - BLOOD TESTOSTERONE DECREASED [None]
